FAERS Safety Report 21638839 (Version 1)
Quarter: 2022Q4

REPORT INFORMATION
  Report Type: Report from Study
  Country: US (occurrence: US)
  Receive Date: 20221124
  Receipt Date: 20221124
  Transmission Date: 20230113
  Serious: No
  Sender: FDA-Public Use
  Company Number: US-ABBVIE-4176959

PATIENT
  Sex: Male

DRUGS (1)
  1. HUMIRA [Suspect]
     Active Substance: ADALIMUMAB
     Indication: Rheumatoid arthritis
     Route: 058

REACTIONS (11)
  - Injection site bruising [Recovering/Resolving]
  - Nausea [Recovering/Resolving]
  - Feeling abnormal [Unknown]
  - Abdominal discomfort [Unknown]
  - Injection site pruritus [Unknown]
  - Arthralgia [Recovering/Resolving]
  - Diarrhoea [Unknown]
  - Gastrointestinal disorder [Recovering/Resolving]
  - Injection site discolouration [Recovering/Resolving]
  - Chills [Recovering/Resolving]
  - Injection site reaction [Recovering/Resolving]
